FAERS Safety Report 13498528 (Version 2)
Quarter: 2017Q2

REPORT INFORMATION
  Report Type: Spontaneous
  Country: US (occurrence: US)
  Receive Date: 20170501
  Receipt Date: 20170526
  Transmission Date: 20170830
  Serious: Yes (Other)
  Sender: FDA-Public Use
  Company Number: US-SUN PHARMACEUTICAL INDUSTRIES LTD-2017SUN00139

PATIENT
  Age: 81 Year
  Sex: Female

DRUGS (1)
  1. TECHNETIUM TC-99M SULFUR COLLOID KIT [Suspect]
     Active Substance: TECHNETIUM TC-99M SULFUR COLLOID
     Indication: GASTRIC EMPTYING STUDY
     Dosage: 2 MCI, OD
     Route: 048
     Dates: start: 20170413, end: 20170413

REACTIONS (3)
  - Throat tightness [Unknown]
  - Lethargy [Unknown]
  - Syncope [Unknown]

NARRATIVE: CASE EVENT DATE: 20170413
